FAERS Safety Report 6044300-0 (Version None)
Quarter: 2009Q1

REPORT INFORMATION
  Report Type: 
  Country: None (occurrence: None)
  Receive Date: 20090115
  Receipt Date: 20090115
  Transmission Date: 20090719
  Serious: Yes (Disabling)
  Sender: FDA-Public Use
  Company Number: None

PATIENT
  Sex: Female

DRUGS (8)
  1. AREDIA [Suspect]
     Indication: BREAST CANCER
     Dosage: 4 MG WEEKLY IV
     Route: 042
     Dates: start: 19990801, end: 20020801
  2. ZOMETA [Suspect]
     Dates: start: 20020901, end: 20040801
  3. TOPAMAX [Concomitant]
  4. CELEBREX [Concomitant]
  5. ARIMIDEX [Concomitant]
  6. MORPHINE [Concomitant]
  7. THYROXIN [Concomitant]
  8. EFFEXOR [Concomitant]

REACTIONS (4)
  - BONE DISORDER [None]
  - BONE SWELLING [None]
  - JAW DISORDER [None]
  - TENDERNESS [None]
